FAERS Safety Report 8601855-7 (Version None)
Quarter: 2012Q3

REPORT INFORMATION
  Report Type: 
  Country: None (occurrence: None)
  Receive Date: 20120817
  Receipt Date: 20120529
  Transmission Date: 20120928
  Serious: No
  Sender: FDA-Public Use
  Company Number: US-BRISTOL-MYERS SQUIBB COMPANY-16569741

PATIENT
  Age: 46 Year
  Sex: Male

DRUGS (1)
  1. SPRYCEL [Suspect]
     Indication: ACUTE LYMPHOCYTIC LEUKAEMIA
     Dosage: DOSE REDUCED TO 70MG, 2 TABLETS DAILY
     Route: 048
     Dates: start: 20111208, end: 20120106

REACTIONS (2)
  - DIARRHOEA [None]
  - ABDOMINAL PAIN [None]
